FAERS Safety Report 16384155 (Version 2)
Quarter: 2019Q3

REPORT INFORMATION
  Report Type: Spontaneous
  Country: JP (occurrence: JP)
  Receive Date: 20190603
  Receipt Date: 20190701
  Transmission Date: 20191004
  Serious: Yes (Hospitalization, Other)
  Sender: FDA-Public Use
  Company Number: JP-JNJFOC-20190600175

PATIENT
  Age: 62 Year
  Sex: Male

DRUGS (5)
  1. CANAGLIFLOZIN TABLET [Suspect]
     Active Substance: CANAGLIFLOZIN
     Indication: TYPE 2 DIABETES MELLITUS
     Route: 048
     Dates: start: 20160324, end: 20180821
  2. SUREPOST [Concomitant]
     Active Substance: REPAGLINIDE
     Indication: TYPE 2 DIABETES MELLITUS
     Route: 048
     Dates: start: 20150127, end: 20180821
  3. ALOSITOL [Concomitant]
     Active Substance: ALLOPURINOL
     Route: 048
     Dates: start: 201512
  4. ATEDIO [Concomitant]
     Active Substance: CILNIDIPINE\VALSARTAN
     Route: 048
     Dates: start: 201512
  5. ZETIA [Concomitant]
     Active Substance: EZETIMIBE
     Route: 048

REACTIONS (1)
  - Bile duct cancer [Recovered/Resolved]

NARRATIVE: CASE EVENT DATE: 20180514
